FAERS Safety Report 26214607 (Version 1)
Quarter: 2025Q4

REPORT INFORMATION
  Report Type: Spontaneous
  Country: EU (occurrence: EU)
  Receive Date: 20251230
  Receipt Date: 20251230
  Transmission Date: 20260118
  Serious: Yes (Other)
  Sender: PFIZER
  Company Number: EU-UCBSA-2025078945

PATIENT
  Age: 51 Year
  Sex: Female

DRUGS (1)
  1. LEVETIRACETAM [Suspect]
     Active Substance: LEVETIRACETAM
     Indication: Seizure
     Dosage: 1000 MG, 2X/DAY (GRADUAL DOSES UP TO 1000 MG/12 H.   )
     Dates: start: 202211

REACTIONS (4)
  - Suicidal ideation [Recovered/Resolved]
  - Irritability [Unknown]
  - Anxiety [Unknown]
  - Affect lability [Unknown]

NARRATIVE: CASE EVENT DATE: 20221201
